FAERS Safety Report 22228524 (Version 1)
Quarter: 2023Q2

REPORT INFORMATION
  Report Type: Spontaneous
  Country: US (occurrence: None)
  Receive Date: 20230418
  Receipt Date: 20230418
  Transmission Date: 20230722
  Serious: Yes (Hospitalization)
  Sender: FDA-Public Use
  Company Number: None

PATIENT
  Age: 30 Year
  Sex: Female
  Weight: 66 kg

DRUGS (8)
  1. SOLU-MEDROL [Suspect]
     Active Substance: METHYLPREDNISOLONE SODIUM SUCCINATE
     Indication: Multiple sclerosis
     Dosage: 1000 MG DAILY INTRAVENOUS BOLUS
     Route: 040
     Dates: start: 20230413, end: 20230417
  2. Adderall XR 10 mg; take 10 mg by mouth every morning [Concomitant]
     Dates: start: 20191101
  3. acetaminophen 500 - 1000 mg every 6 hours prn pain [Concomitant]
     Dates: start: 20190401
  4. albuterol 90 base; inhale 2 puffs q6h prn sob [Concomitant]
     Dates: start: 20200201
  5. aripiprazole 2 mg tab; take 2 mg po qd [Concomitant]
     Dates: start: 20200101
  6. hydroxyzine hcl 25 mg tab; take 1 tab tid prn anxiety [Concomitant]
  7. omeprazole 20 mg; take 20 mg po qd x 30 days [Concomitant]
     Dates: start: 20230414
  8. ondansetron 4 mg; take 1 tab po q4h prn nausea/vomiting [Concomitant]
     Dates: start: 20230414

REACTIONS (5)
  - Bradycardia [None]
  - Dizziness [None]
  - Chest discomfort [None]
  - Dyspnoea [None]
  - Infusion related reaction [None]

NARRATIVE: CASE EVENT DATE: 20230417
